FAERS Safety Report 7559639-7 (Version None)
Quarter: 2011Q2

REPORT INFORMATION
  Report Type: 
  Country: None (occurrence: None)
  Receive Date: 20110621
  Receipt Date: 20110614
  Transmission Date: 20111010
  Serious: Yes (Other)
  Sender: FDA-Public Use
  Company Number: NO-ASTRAZENECA-2011SE36173

PATIENT
  Age: 16804 Day
  Sex: Female

DRUGS (7)
  1. RISPERDAL [Suspect]
     Dates: start: 20030530, end: 20030721
  2. SEROQUEL [Suspect]
     Indication: SCHIZOPHRENIA, PARANOID TYPE
     Route: 048
     Dates: start: 20030701
  3. TRILAFON [Suspect]
     Indication: SCHIZOPHRENIA, PARANOID TYPE
     Route: 048
     Dates: start: 19930101, end: 19940101
  4. TRILAFON [Suspect]
     Dosage: CONCENTRATION 108 MG/ML, 1 ML EVERY THIRD WEEK
  5. CISORDINOL [Suspect]
     Indication: SCHIZOPHRENIA, PARANOID TYPE
     Dates: start: 19940101
  6. RISPERDAL [Suspect]
     Indication: SCHIZOPHRENIA, PARANOID TYPE
     Dates: start: 20030530, end: 20030721
  7. TRILAFON [Suspect]
     Indication: SCHIZOPHRENIA, PARANOID TYPE
     Dosage: CONCENTRATION 108 MG/ML, 1ML EVERY TWO WEEKS

REACTIONS (10)
  - TARDIVE DYSKINESIA [None]
  - BLOOD PROLACTIN INCREASED [None]
  - LATENT AUTOIMMUNE DIABETES IN ADULTS [None]
  - MIGRAINE WITH AURA [None]
  - THERAPEUTIC PRODUCT INEFFECTIVE [None]
  - VISUAL IMPAIRMENT [None]
  - RESTLESSNESS [None]
  - PARKINSONISM [None]
  - TENSION [None]
  - BLOOD CHOLESTEROL INCREASED [None]
